FAERS Safety Report 13709657 (Version 2)
Quarter: 2017Q3

REPORT INFORMATION
  Report Type: Spontaneous
  Country: US (occurrence: US)
  Receive Date: 20170703
  Receipt Date: 20170719
  Transmission Date: 20171127
  Serious: Yes (Life-Threatening, Hospitalization, Other)
  Sender: FDA-Public Use
  Company Number: US-ACCORD-052968

PATIENT
  Age: 62 Year
  Sex: Male
  Weight: 142.3 kg

DRUGS (15)
  1. IPRATROPIUM/SALBUTAMOL [Concomitant]
     Indication: CHRONIC OBSTRUCTIVE PULMONARY DISEASE
     Dosage: STRENGTH: 100/20 UG,??ONE INHALATION FOUR TIMES DAILY (QID) AS NEEDED (PRN)
     Route: 055
  2. CYANOCOBALAMIN/CYANOCOBALAMIN ZINC TANNATE/CYANOCOBALAMIN-TANNIN COMPLEX [Concomitant]
     Indication: ANAEMIA
     Dosage: DOSE:  1000 MG PO DAILY
     Route: 048
  3. LATANOPROST. [Concomitant]
     Active Substance: LATANOPROST
     Indication: GLAUCOMA
     Dosage: STRENGTH:  0.05% EYE DROPS,  BOTH EYES (OU),  AT BEDTIME (HS)??DOSE: 1 EYE DROP
     Route: 047
  4. CARVEDILOL/CARVEDILOL HYDROCHLODRIDE [Concomitant]
     Indication: ATRIAL FIBRILLATION
     Dosage: DOSE: 6.25 MG PER ORAL (PO) TWICE DAILY (BID)
     Route: 048
  5. DOCETAXEL. [Suspect]
     Active Substance: DOCETAXEL
     Indication: PROSTATE CANCER METASTATIC
     Dosage: DOSE: 1ST CY 100 MG IN 250 ML 0.9% NS OVER 60 MIN EVERY TWO WEEK (Q2W) , LATER 2ND CYCLE RECEIVED
     Route: 042
  6. TRAZODONE [Concomitant]
     Active Substance: TRAZODONE HYDROCHLORIDE
     Indication: INSOMNIA
     Dosage: DOSE: 50 MG PO HS
     Route: 048
  7. DEXAMETHASONE. [Concomitant]
     Active Substance: DEXAMETHASONE
     Indication: PREMEDICATION
     Dosage: DOSE: 12 MG IN 50 ML 0.9% NS OVER 15 MIN
     Route: 042
  8. ATORVASTATIN [Concomitant]
     Active Substance: ATORVASTATIN
     Indication: HYPERLIPIDAEMIA
     Dosage: DOSE: 40 MG  PER ORAL (PO) AT BEDTIME (HS)
     Route: 048
  9. DABIGATRAN [Concomitant]
     Active Substance: DABIGATRAN
     Indication: ATRIAL FIBRILLATION
     Dosage: DOSE:  150 MG PO BID
     Route: 048
  10. METFORMIN [Concomitant]
     Active Substance: METFORMIN HYDROCHLORIDE
     Indication: TYPE 2 DIABETES MELLITUS
     Dosage: DOSE: 500 MG PO BID
     Route: 048
  11. ELIGARD [Suspect]
     Active Substance: LEUPROLIDE ACETATE
     Indication: PROSTATE CANCER METASTATIC
     Dosage: DOSE: 45 MG SC EVERY SIX MONTHS (Q6M)
     Route: 058
  12. FUROSEMIDE. [Concomitant]
     Active Substance: FUROSEMIDE
     Indication: HYPERTENSION
     Dosage: DOSE:  20 MG PO DAILY
     Route: 048
  13. ONDANSETRON [Concomitant]
     Active Substance: ONDANSETRON
     Indication: PREMEDICATION
     Dosage: DOSE: 16 MG IN 50 ML 0.9% NS OVER 15 MIN
     Route: 042
  14. COLECALCIFEROL [Concomitant]
     Active Substance: CHOLECALCIFEROL
     Indication: VITAMIN D
     Dosage: DOSE: 2000 IU PO DAILY
     Route: 048
  15. PROCHLORPERAZINE. [Concomitant]
     Active Substance: PROCHLORPERAZINE
     Indication: NAUSEA
     Dosage: DOSE: 10 MG PO TID PRN
     Route: 048

REACTIONS (5)
  - Circulatory collapse [Unknown]
  - Atrial fibrillation [Unknown]
  - Cardio-respiratory arrest [Unknown]
  - Upper respiratory tract infection [Unknown]
  - Right ventricular hypertrophy [Unknown]
